FAERS Safety Report 5431496-4 (Version None)
Quarter: 2007Q3

REPORT INFORMATION
  Report Type: 
  Country: None (occurrence: None)
  Receive Date: 20070830
  Receipt Date: 20070720
  Transmission Date: 20080115
  Serious: No
  Sender: FDA-Public Use
  Company Number: A0665373A

PATIENT
  Age: 51 Year
  Sex: Female

DRUGS (6)
  1. WELLBUTRIN XL [Suspect]
     Indication: DEPRESSION
     Dosage: 150MG PER DAY
     Route: 048
     Dates: start: 20070501, end: 20070601
  2. ZOLOFT [Concomitant]
  3. VITAMIN E [Concomitant]
  4. ASCORBIC ACID [Concomitant]
  5. CALCIUM [Concomitant]
  6. ALBUTEROL [Concomitant]

REACTIONS (2)
  - ERYTHEMA [None]
  - RASH PRURITIC [None]
